FAERS Safety Report 24228292 (Version 1)
Quarter: 2024Q3

REPORT INFORMATION
  Report Type: Spontaneous
  Country: US (occurrence: None)
  Receive Date: 20240819
  Receipt Date: 20240819
  Transmission Date: 20241016
  Serious: Yes (Hospitalization)
  Sender: Public
  Company Number: None

PATIENT
  Age: 48 Year
  Sex: Male
  Weight: 82.4 kg

DRUGS (1)
  1. AMTAGVI [Suspect]
     Active Substance: LIFILEUCEL
     Indication: Malignant melanoma
     Dosage: 1 DF DOSAGE FORM ONCE INTRAVENOUS ?
     Route: 042
     Dates: start: 20240625, end: 20240625

REACTIONS (3)
  - Febrile neutropenia [None]
  - Cytokine release syndrome [None]
  - Pancytopenia [None]

NARRATIVE: CASE EVENT DATE: 20240627
